FAERS Safety Report 8796166 (Version 1)
Quarter: 2012Q4

REPORT INFORMATION
  Report Type: 
  Country: FR (occurrence: FR)
  Receive Date: 20120920
  Receipt Date: 20120920
  Transmission Date: 20130627
  Serious: Yes (Hospitalization, Other)
  Sender: FDA-Public Use
  Company Number: FR-PFIZER INC-2012231283

PATIENT
  Age: 97 Year
  Sex: Female

DRUGS (3)
  1. CORDARONE [Suspect]
     Indication: ARRHYTHMIA
     Dosage: 200 mg, daily
     Route: 048
     Dates: end: 201203
  2. LEVOTHYROX [Concomitant]
     Dosage: UNK
  3. DAFLON [Concomitant]
     Dosage: UNK

REACTIONS (3)
  - Lung disorder [Recovered/Resolved]
  - Interstitial lung disease [Recovered/Resolved]
  - Pneumococcal infection [Recovered/Resolved]
